FAERS Safety Report 15400363 (Version 2)
Quarter: 2018Q3

REPORT INFORMATION
  Report Type: Spontaneous
  Country: US (occurrence: US)
  Receive Date: 20180919
  Receipt Date: 20180926
  Transmission Date: 20181010
  Serious: Yes (Other)
  Sender: FDA-Public Use
  Company Number: US-ASTRAZENECA-2018SF08758

PATIENT
  Age: 27006 Day
  Sex: Female
  Weight: 108 kg

DRUGS (3)
  1. BRILINTA [Suspect]
     Active Substance: TICAGRELOR
     Indication: STENT PLACEMENT
     Route: 048
     Dates: start: 20180809
  2. ASPIRIN. [Concomitant]
     Active Substance: ASPIRIN
     Indication: ADJUVANT THERAPY
  3. COUMADIN [Concomitant]
     Active Substance: WARFARIN SODIUM
     Indication: AORTIC VALVE REPLACEMENT

REACTIONS (3)
  - Haemorrhage urinary tract [Recovered/Resolved]
  - Dysuria [Unknown]
  - Urethral obstruction [Unknown]

NARRATIVE: CASE EVENT DATE: 20180815
